FAERS Safety Report 20141237 (Version 1)
Quarter: 2021Q4

REPORT INFORMATION
  Report Type: Spontaneous
  Country: US (occurrence: None)
  Receive Date: 20211202
  Receipt Date: 20211202
  Transmission Date: 20220303
  Serious: No
  Sender: FDA-Public Use
  Company Number: 2021A809976

PATIENT
  Age: 10740 Day
  Sex: Female
  Weight: 85.7 kg

DRUGS (1)
  1. BYDUREON BCISE [Suspect]
     Active Substance: EXENATIDE
     Route: 058

REACTIONS (5)
  - Overdose [Unknown]
  - Injection site pain [Unknown]
  - Needle issue [Unknown]
  - Incorrect dose administered by product [Unknown]
  - Product dose omission issue [Unknown]

NARRATIVE: CASE EVENT DATE: 20211111
